FAERS Safety Report 12582447 (Version 1)
Quarter: 2016Q3

REPORT INFORMATION
  Report Type: Spontaneous
  Country: FR (occurrence: FR)
  Receive Date: 20160722
  Receipt Date: 20160722
  Transmission Date: 20161109
  Serious: Yes (Hospitalization)
  Sender: FDA-Public Use
  Company Number: FR-009507513-1607FRA007159

PATIENT
  Age: 57 Year
  Sex: Female

DRUGS (1)
  1. NOROXINE [Suspect]
     Active Substance: NORFLOXACIN
     Indication: PYELONEPHRITIS ACUTE
     Dosage: UNK
     Route: 048
     Dates: start: 20120908, end: 20120910

REACTIONS (2)
  - Hepatocellular injury [Recovering/Resolving]
  - Cholestasis [Recovering/Resolving]

NARRATIVE: CASE EVENT DATE: 20120910
